FAERS Safety Report 24970315 (Version 2)
Quarter: 2025Q1

REPORT INFORMATION
  Report Type: Spontaneous
  Country: US (occurrence: US)
  Receive Date: 20250214
  Receipt Date: 20250312
  Transmission Date: 20250409
  Serious: No
  Sender: BRISTOL-MYERS SQUIBB COMPANY
  Company Number: US-BRISTOL-MYERS SQUIBB COMPANY-2025-017941

PATIENT
  Age: 74 Year
  Sex: Female

DRUGS (1)
  1. LENALIDOMIDE [Suspect]
     Active Substance: LENALIDOMIDE
     Indication: Plasma cell myeloma in remission
     Dosage: FREQUENCY: NEVER FILLED
     Route: 048

REACTIONS (19)
  - Hypersensitivity [Recovering/Resolving]
  - Diarrhoea [Not Recovered/Not Resolved]
  - Flatulence [Recovering/Resolving]
  - Weight decreased [Recovering/Resolving]
  - Musculoskeletal pain [Recovering/Resolving]
  - Arthralgia [Recovering/Resolving]
  - Fatigue [Recovering/Resolving]
  - Fall [Recovering/Resolving]
  - Nausea [Recovering/Resolving]
  - Decreased appetite [Recovering/Resolving]
  - Initial insomnia [Recovering/Resolving]
  - Depression [Recovering/Resolving]
  - Restlessness [Recovering/Resolving]
  - Visual impairment [Recovering/Resolving]
  - Heart rate decreased [Recovering/Resolving]
  - Dehydration [Recovering/Resolving]
  - Blood potassium decreased [Recovering/Resolving]
  - Pancreatic mass [Recovering/Resolving]
  - Dysarthria [Recovering/Resolving]

NARRATIVE: CASE EVENT DATE: 20240101
